FAERS Safety Report 20448347 (Version 2)
Quarter: 2022Q2

REPORT INFORMATION
  Report Type: Report from Study
  Country: DE (occurrence: DE)
  Receive Date: 20220209
  Receipt Date: 20220415
  Transmission Date: 20220721
  Serious: Yes (Hospitalization, Other)
  Sender: FDA-Public Use
  Company Number: DE-NOVARTISPH-NVSC2021DE273184

PATIENT
  Sex: Male

DRUGS (6)
  1. BEOVU [Suspect]
     Active Substance: BROLUCIZUMAB-DBLL
     Indication: Neovascular age-related macular degeneration
     Dosage: 0.05 ML, ONCE/SINGLE (6MG, RIGHT EYE, PRE-FILLED SYRINGE 120MG/ML)
     Route: 031
     Dates: start: 20210422, end: 20210422
  2. BEOVU [Suspect]
     Active Substance: BROLUCIZUMAB-DBLL
     Dosage: 0.05 ML, ONCE/SINGLE (6MG, RIGHT EYE, PRE-FILLED SYRINGE 120MG/ML)
     Route: 031
     Dates: start: 20210520, end: 20210520
  3. BEOVU [Suspect]
     Active Substance: BROLUCIZUMAB-DBLL
     Dosage: 0.05 ML, ONCE/SINGLE (6MG, RIGHT EYE, PRE-FILLED SYRINGE 120MG/ML)
     Route: 031
     Dates: start: 20210617, end: 20210617
  4. BEOVU [Suspect]
     Active Substance: BROLUCIZUMAB-DBLL
     Dosage: 0.05 ML, ONCE/SINGLE ((6MG, RIGHT EYE, PRE-FILLED SYRINGE 120MG/ML)
     Route: 031
     Dates: start: 20210422, end: 20210422
  5. BEOVU [Suspect]
     Active Substance: BROLUCIZUMAB-DBLL
     Dosage: 0.05 ML, ONCE/SINGLE (6MG, RIGHT EYE, PRE-FILLED SYRINGE 120MG/ML)
     Route: 031
     Dates: start: 20210520, end: 20210520
  6. BEOVU [Suspect]
     Active Substance: BROLUCIZUMAB-DBLL
     Dosage: 0.05 ML, ONCE/SINGLE ((6MG, RIGHT EYE, PRE-FILLED SYRINGE 120MG/ML)
     Route: 031
     Dates: start: 20210617, end: 20210617

REACTIONS (1)
  - General physical health deterioration [Unknown]
